FAERS Safety Report 9347506 (Version 2)
Quarter: 2013Q3

REPORT INFORMATION
  Report Type: Report from Study
  Country: ES (occurrence: ES)
  Receive Date: 20130614
  Receipt Date: 20130729
  Transmission Date: 20140515
  Serious: Yes (Death, Life-Threatening, Hospitalization, Other)
  Sender: FDA-Public Use
  Company Number: ES-ROCHE-1234197

PATIENT
  Age: 49 Year
  Sex: Male

DRUGS (10)
  1. RIBAVIRIN [Suspect]
     Indication: HEPATITIS C
     Route: 048
     Dates: start: 20130418, end: 20130516
  2. RIBAVIRIN [Suspect]
     Route: 048
     Dates: start: 20130523
  3. PEG-INTERFERON ALFA 2A [Suspect]
     Indication: HEPATITIS C
     Route: 058
     Dates: start: 20130418, end: 20130509
  4. SOFOSBUVIR [Suspect]
     Indication: HEPATITIS C
     Route: 048
     Dates: start: 20130420, end: 20130516
  5. SOFOSBUVIR [Suspect]
     Route: 048
     Dates: start: 20130523
  6. TACROLIMUS [Concomitant]
     Indication: HEPATITIS C
     Route: 065
     Dates: start: 20120814
  7. TACROLIMUS [Concomitant]
     Route: 065
     Dates: start: 20130628
  8. MYCOPHENOLATE MOFETIL [Concomitant]
     Route: 065
     Dates: start: 20120814
  9. OMEPRAZOLE [Concomitant]
     Route: 065
     Dates: start: 201208
  10. PREDNISONE [Concomitant]
     Dosage: 10 MG DAILY
     Route: 065

REACTIONS (2)
  - Peritonitis bacterial [Fatal]
  - Histiocytosis haematophagic [Not Recovered/Not Resolved]
